FAERS Safety Report 7011269-1 (Version None)
Quarter: 2010Q3

REPORT INFORMATION
  Report Type: 
  Country: None (occurrence: None)
  Receive Date: 20100922
  Receipt Date: 20100922
  Transmission Date: 20110219
  Serious: Yes (Other)
  Sender: FDA-Public Use
  Company Number: None

PATIENT
  Age: 59 Year
  Sex: Female
  Weight: 72.1219 kg

DRUGS (1)
  1. APLENZIN [Suspect]
     Indication: DEPRESSION
     Dosage: ONE 348MG TAB DAILY PO
     Route: 048
     Dates: start: 20090101

REACTIONS (3)
  - DYSKINESIA [None]
  - FRUSTRATION [None]
  - TREMOR [None]
